FAERS Safety Report 6037858-9 (Version None)
Quarter: 2009Q1

REPORT INFORMATION
  Report Type: 
  Country: None (occurrence: None)
  Receive Date: 20090114
  Receipt Date: 20090114
  Transmission Date: 20090719
  Serious: No
  Sender: FDA-Public Use
  Company Number: None

PATIENT
  Age: 51 Year
  Sex: Female

DRUGS (1)
  1. CARBOPLATIN [Suspect]
     Dates: start: 20080612, end: 20080612

REACTIONS (2)
  - INCORRECT DRUG ADMINISTRATION DURATION [None]
  - MEDICATION ERROR [None]
